FAERS Safety Report 4657680-5 (Version None)
Quarter: 2005Q2

REPORT INFORMATION
  Report Type: 
  Country: None (occurrence: None)
  Receive Date: 20050411
  Receipt Date: 20050112
  Transmission Date: 20051028
  Serious: Yes (Disabling)
  Sender: FDA-Public Use
  Company Number: GXBR2005US00448

PATIENT
  Age: 44 Year
  Sex: Male

DRUGS (2)
  1. MEFLOQUINE HCL [Suspect]
     Indication: MALARIA PROPHYLAXIS
     Dosage: 250 MG, QW, ORAL
     Route: 048
     Dates: start: 20040301, end: 20040801
  2. CIPRO [Concomitant]

REACTIONS (6)
  - ASTHENIA [None]
  - DISTURBANCE IN ATTENTION [None]
  - DIZZINESS POSTURAL [None]
  - LOSS OF CONSCIOUSNESS [None]
  - PALPITATIONS [None]
  - TREMOR [None]
